FAERS Safety Report 7240452-5 (Version None)
Quarter: 2011Q1

REPORT INFORMATION
  Report Type: 
  Country: None (occurrence: None)
  Receive Date: 20110124
  Receipt Date: 20110119
  Transmission Date: 20110831
  Serious: No
  Sender: FDA-Public Use
  Company Number: US-PFIZER INC-2011013841

PATIENT
  Sex: Male
  Weight: 67.6 kg

DRUGS (4)
  1. CELEBREX [Suspect]
     Indication: INFLAMMATION
     Dosage: 200 MG, 1X/DAY
     Route: 048
     Dates: start: 20110119, end: 20110119
  2. DEPAKOTE [Concomitant]
     Dosage: UNK
  3. ADDERALL 10 [Concomitant]
     Dosage: UNK
  4. SEROQUEL [Concomitant]
     Dosage: UNK

REACTIONS (4)
  - PAIN [None]
  - RASH [None]
  - TREMOR [None]
  - PRURITUS [None]
